FAERS Safety Report 17446503 (Version 2)
Quarter: 2020Q1

REPORT INFORMATION
  Report Type: Spontaneous
  Country: FR (occurrence: FR)
  Receive Date: 20200221
  Receipt Date: 20200320
  Transmission Date: 20200409
  Serious: Yes (Other)
  Sender: FDA-Public Use
  Company Number: FR-EMD SERONO-9147130

PATIENT
  Age: 32 Year
  Sex: Female

DRUGS (4)
  1. LEVOTHYROX [Suspect]
     Active Substance: LEVOTHYROXINE
  2. SAIZEN [Suspect]
     Active Substance: SOMATROPIN
     Indication: HYPOTHALAMO-PITUITARY DISORDER
     Dosage: EQUALS TO 0.00638 AND 0.00652 MG/KG/DAY
  3. LEVOTHYROX [Suspect]
     Active Substance: LEVOTHYROXINE
  4. LEVOTHYROX [Suspect]
     Active Substance: LEVOTHYROXINE
     Indication: PRODUCT USED FOR UNKNOWN INDICATION
     Dosage: NEW FORMULATION

REACTIONS (14)
  - Fatigue [Not Recovered/Not Resolved]
  - Product storage error [Unknown]
  - Blood thyroid stimulating hormone decreased [Not Recovered/Not Resolved]
  - Ill-defined disorder [Not Recovered/Not Resolved]
  - Adrenal insufficiency [Unknown]
  - Thyroxine free decreased [Unknown]
  - Thyroxine increased [Not Recovered/Not Resolved]
  - Feeling cold [Not Recovered/Not Resolved]
  - Menstruation irregular [Not Recovered/Not Resolved]
  - Impaired work ability [Not Recovered/Not Resolved]
  - Irritability [Not Recovered/Not Resolved]
  - Hospitalisation [Unknown]
  - Injection site pain [Recovered/Resolved]
  - Poor quality product administered [Unknown]

NARRATIVE: CASE EVENT DATE: 201906
